FAERS Safety Report 21247125 (Version 2)
Quarter: 2022Q4

REPORT INFORMATION
  Report Type: Spontaneous
  Country: US (occurrence: US)
  Receive Date: 20220824
  Receipt Date: 20221017
  Transmission Date: 20230113
  Serious: No
  Sender: FDA-Public Use
  Company Number: US-LEO Pharma-344892

PATIENT
  Sex: Male

DRUGS (1)
  1. ADBRY [Suspect]
     Active Substance: TRALOKINUMAB-LDRM
     Indication: Dermatitis atopic
     Route: 058
     Dates: start: 20220623

REACTIONS (6)
  - Dry skin [Unknown]
  - Pruritus [Unknown]
  - Rash erythematous [Unknown]
  - Sneezing [Unknown]
  - Rhinorrhoea [Unknown]
  - Eye irritation [Unknown]
